FAERS Safety Report 12787042 (Version 4)
Quarter: 2017Q1

REPORT INFORMATION
  Report Type: Spontaneous
  Country: US (occurrence: US)
  Receive Date: 20160927
  Receipt Date: 20170105
  Transmission Date: 20170428
  Serious: No
  Sender: FDA-Public Use
  Company Number: US-PFIZER INC-2016451718

PATIENT
  Age: 68 Year
  Sex: Female
  Weight: 68 kg

DRUGS (2)
  1. QUILLIVANT XR [Suspect]
     Active Substance: METHYLPHENIDATE HYDROCHLORIDE
     Indication: DEPRESSION
     Dosage: 1 DF, 1X/DAY (ONE SYRINGE JUST IN THE MORNING)
     Route: 048
     Dates: start: 201509, end: 2016
  2. SYNTHROID [Concomitant]
     Active Substance: LEVOTHYROXINE SODIUM
     Dosage: UNK
     Dates: start: 1990

REACTIONS (5)
  - Malaise [Unknown]
  - Visual acuity reduced [Recovered/Resolved]
  - Fatigue [Unknown]
  - Product use issue [Unknown]
  - Headache [Unknown]
